FAERS Safety Report 16445438 (Version 5)
Quarter: 2020Q1

REPORT INFORMATION
  Report Type: Report from Study
  Country: GB (occurrence: GB)
  Receive Date: 20190618
  Receipt Date: 20200325
  Transmission Date: 20200409
  Serious: Yes (Hospitalization)
  Sender: FDA-Public Use
  Company Number: PHHY2019GB139810

PATIENT
  Age: 77 Year
  Sex: Female

DRUGS (2)
  1. COSENTYX [Suspect]
     Active Substance: SECUKINUMAB
     Dosage: 300 MG,QMO (PREFILLED PEN)
     Route: 058
     Dates: start: 2019
  2. COSENTYX [Suspect]
     Active Substance: SECUKINUMAB
     Indication: PSORIATIC ARTHROPATHY
     Dosage: 300 MG, Q2W
     Route: 058
     Dates: start: 20180828

REACTIONS (6)
  - Femur fracture [Unknown]
  - Skin discolouration [Unknown]
  - Limb injury [Unknown]
  - Fall [Unknown]
  - Wrist fracture [Unknown]
  - Inappropriate schedule of product administration [Unknown]

NARRATIVE: CASE EVENT DATE: 20180828
